FAERS Safety Report 16563150 (Version 3)
Quarter: 2019Q3

REPORT INFORMATION
  Report Type: Spontaneous
  Country: DE (occurrence: DE)
  Receive Date: 20190711
  Receipt Date: 20190813
  Transmission Date: 20191004
  Serious: No
  Sender: FDA-Public Use
  Company Number: DE-009507513-1907DEU001307

PATIENT
  Age: 23 Year
  Sex: Female
  Weight: 78 kg

DRUGS (6)
  1. TORSEMIDE. [Suspect]
     Active Substance: TORSEMIDE
     Dosage: 50 MILLIGRAM
  2. BETAMETHASONE SODIUM PHOSPHATE [Suspect]
     Active Substance: BETAMETHASONE SODIUM PHOSPHATE
     Indication: MATERNAL THERAPY TO ENHANCE FOETAL LUNG MATURITY
     Dosage: 12 MILLIGRAM, Q24H
     Route: 030
  3. BETAMETHASONE SODIUM PHOSPHATE [Suspect]
     Active Substance: BETAMETHASONE SODIUM PHOSPHATE
     Dosage: 12 MILLIGRAM, Q24H
     Route: 030
  4. CEFUROXIME. [Suspect]
     Active Substance: CEFUROXIME
     Dosage: 250 MILLIGRAM
     Route: 065
  5. SODIUM BICARBONATE. [Suspect]
     Active Substance: SODIUM BICARBONATE
     Dosage: 1 GRAM
  6. ALLOPURINOL. [Suspect]
     Active Substance: ALLOPURINOL
     Dosage: 300 MILLIGRAM

REACTIONS (1)
  - Maternal exposure during pregnancy [Recovered/Resolved]
